FAERS Safety Report 8240841-6 (Version None)
Quarter: 2012Q1

REPORT INFORMATION
  Report Type: 
  Country: None (occurrence: None)
  Receive Date: 20120328
  Receipt Date: 20120326
  Transmission Date: 20120608
  Serious: Yes (Death, Hospitalization)
  Sender: FDA-Public Use
  Company Number: PHHY2012IN025981

PATIENT
  Sex: Male

DRUGS (1)
  1. TASIGNA [Suspect]
     Dosage: 800 MG, DAILY
     Route: 048

REACTIONS (4)
  - INFECTION [None]
  - DEATH [None]
  - DYSPNOEA [None]
  - VOMITING [None]
